FAERS Safety Report 8572060-8 (Version None)
Quarter: 2012Q3

REPORT INFORMATION
  Report Type: 
  Country: None (occurrence: None)
  Receive Date: 20120806
  Receipt Date: 20120724
  Transmission Date: 20120928
  Serious: Yes (Death)
  Sender: FDA-Public Use
  Company Number: NZ-UCBSA-062892

PATIENT

DRUGS (1)
  1. ROTIGOTINE [Suspect]
     Route: 062

REACTIONS (1)
  - DEATH [None]
